FAERS Safety Report 8273627-7 (Version None)
Quarter: 2012Q2

REPORT INFORMATION
  Report Type: 
  Country: None (occurrence: None)
  Receive Date: 20120409
  Receipt Date: 20120409
  Transmission Date: 20120825
  Serious: Yes (Hospitalization)
  Sender: FDA-Public Use
  Company Number: None

PATIENT
  Sex: Male

DRUGS (9)
  1. PHENTERMINE [Concomitant]
  2. HYDROCHLOROTHIAZIDE [Concomitant]
  3. LIPITOR [Concomitant]
  4. ZOLPIDEM [Concomitant]
  5. NEXIUM [Concomitant]
  6. TOPIRAMATE [Suspect]
     Indication: APPETITE DISORDER
     Dosage: 1 TABLET AT BEDTIME
     Dates: start: 20120307, end: 20120325
  7. TOPIRAMATE [Suspect]
     Indication: PROPHYLAXIS
     Dosage: 1 TABLET AT BEDTIME
     Dates: start: 20120307, end: 20120325
  8. TOPIRAMATE [Suspect]
     Indication: HEADACHE
     Dosage: 1 TABLET AT BEDTIME
     Dates: start: 20120307, end: 20120325
  9. FINASTERIDE [Concomitant]

REACTIONS (2)
  - BLINDNESS [None]
  - INTRAOCULAR PRESSURE INCREASED [None]
